FAERS Safety Report 7589611-2 (Version None)
Quarter: 2011Q2

REPORT INFORMATION
  Report Type: 
  Country: None (occurrence: None)
  Receive Date: 20110627
  Receipt Date: 20110620
  Transmission Date: 20111010
  Serious: Yes (Hospitalization, Other)
  Sender: FDA-Public Use
  Company Number: 2011AC000037

PATIENT
  Age: 80 Year
  Sex: Male

DRUGS (23)
  1. CARDURA [Concomitant]
  2. ELAVIL [Concomitant]
  3. ARICEPT [Concomitant]
  4. AMITIZA [Concomitant]
  5. MUCINEX [Concomitant]
  6. VITAMIN D [Concomitant]
  7. LORA TAB [Concomitant]
  8. ACETAMINOPHEN [Concomitant]
  9. POTASSIUM CHLORIDE [Concomitant]
  10. MOBIC [Concomitant]
  11. NEXIUM [Concomitant]
  12. PRILOSEC [Concomitant]
  13. AMITRIPTYLINE HCL [Concomitant]
  14. MICARDIS [Concomitant]
  15. FLEXERIL [Concomitant]
  16. ZYPREXA [Concomitant]
  17. DIGOXIN [Suspect]
     Dosage: 0.125 MG; QD; PO
     Route: 048
     Dates: start: 20080201, end: 20080601
  18. AVAPRO [Concomitant]
  19. AVALIDE [Concomitant]
  20. WARFARIN SODIUM [Concomitant]
  21. CALCIUM CARBONATE [Concomitant]
  22. DIGOXIN [Suspect]
     Dosage: 0.25 MG; QD; PO
     Route: 048
     Dates: start: 19980101, end: 20081001
  23. FLOMAX [Concomitant]

REACTIONS (49)
  - DEMENTIA [None]
  - HEART RATE IRREGULAR [None]
  - CARDIOMEGALY [None]
  - PAIN [None]
  - ANAEMIA [None]
  - AORTIC ANEURYSM [None]
  - FATIGUE [None]
  - INSOMNIA [None]
  - BRONCHITIS [None]
  - PLEURAL FIBROSIS [None]
  - GASTROOESOPHAGEAL REFLUX DISEASE [None]
  - OEDEMA PERIPHERAL [None]
  - ATRIAL FIBRILLATION [None]
  - ELECTROCARDIOGRAM ST-T CHANGE [None]
  - CARDIAC MURMUR [None]
  - CONSTIPATION [None]
  - PULMONARY HYPERTENSION [None]
  - ABDOMINAL DISCOMFORT [None]
  - CEREBRAL ATROPHY [None]
  - AGGRESSION [None]
  - KIDNEY ENLARGEMENT [None]
  - NAUSEA [None]
  - RENAL FAILURE [None]
  - DILATATION ATRIAL [None]
  - TRICUSPID VALVE INCOMPETENCE [None]
  - WEIGHT DECREASED [None]
  - DIARRHOEA [None]
  - SPINAL COMPRESSION FRACTURE [None]
  - ANEURYSM [None]
  - PLEURAL EFFUSION [None]
  - DYSPNOEA EXERTIONAL [None]
  - CARDIOACTIVE DRUG LEVEL INCREASED [None]
  - TOXICITY TO VARIOUS AGENTS [None]
  - INTERNATIONAL NORMALISED RATIO INCREASED [None]
  - BENIGN PROSTATIC HYPERPLASIA [None]
  - BRADYCARDIA [None]
  - PRODUCTIVE COUGH [None]
  - UPPER RESPIRATORY TRACT INFECTION [None]
  - NODULE [None]
  - KYPHOSIS [None]
  - DEHYDRATION [None]
  - AGITATION [None]
  - ARTERIOSCLEROSIS [None]
  - DECREASED APPETITE [None]
  - CONFUSIONAL STATE [None]
  - CONDITION AGGRAVATED [None]
  - BLOOD PRESSURE INCREASED [None]
  - MUSCLE SPASMS [None]
  - OSTEOPENIA [None]
